FAERS Safety Report 4354070-X (Version None)
Quarter: 2004Q2

REPORT INFORMATION
  Report Type: 
  Country: None (occurrence: None)
  Receive Date: 20040506
  Receipt Date: 20040428
  Transmission Date: 20050107
  Serious: Yes (Hospitalization)
  Sender: FDA-Public Use
  Company Number: 200411721FR

PATIENT
  Age: 55 Year
  Sex: Female
  Weight: 120 kg

DRUGS (8)
  1. KETEK [Suspect]
     Route: 048
  2. CELESTENE [Suspect]
     Route: 048
  3. LEVOTHYROXINE SODIUM [Concomitant]
     Dates: start: 20030901
  4. GLUCOR [Concomitant]
     Dates: start: 20030901
  5. FLUDEX [Concomitant]
     Dates: start: 20030901
  6. MEDIATOR [Concomitant]
     Dates: start: 20030901
  7. KLIPAL [Concomitant]
     Dates: start: 20030901
  8. ALLOCHRYSINE [Concomitant]
     Dates: start: 20030901

REACTIONS (1)
  - PANCREATITIS ACUTE [None]
